FAERS Safety Report 9380177 (Version 2)
Quarter: 2013Q4

REPORT INFORMATION
  Report Type: Report from Study
  Country: US (occurrence: US)
  Receive Date: 20130702
  Receipt Date: 20131110
  Transmission Date: 20140711
  Serious: Yes (Hospitalization)
  Sender: FDA-Public Use
  Company Number: PHHO2013US008379

PATIENT
  Age: 66 Year
  Sex: Male

DRUGS (2)
  1. SOM230 [Suspect]
     Indication: HEPATOCELLULAR CARCINOMA
     Dosage: UNK
     Route: 030
     Dates: end: 20130326
  2. AFINITOR [Suspect]
     Indication: HEPATOCELLULAR CARCINOMA
     Route: 048

REACTIONS (8)
  - Mucosal inflammation [Unknown]
  - Diarrhoea [Unknown]
  - Epistaxis [Unknown]
  - Oedema peripheral [Unknown]
  - Muscular weakness [Unknown]
  - Confusional state [Unknown]
  - Dyspnoea [Unknown]
  - Pleural effusion [Unknown]
